FAERS Safety Report 5623271-2 (Version None)
Quarter: 2008Q1

REPORT INFORMATION
  Report Type: 
  Country: None (occurrence: None)
  Receive Date: 20080115
  Receipt Date: 20070323
  Transmission Date: 20080703
  Serious: Yes (Other)
  Sender: FDA-Public Use
  Company Number: 2007010561

PATIENT
  Age: 53 Year
  Sex: Female
  Weight: 68.9 kg

DRUGS (3)
  1. AROMASIN [Suspect]
     Indication: BREAST CANCER
     Dosage: 25 MG (25 MG,DAILY),ORAL
     Route: 048
     Dates: start: 20041115
  2. ACTONEL [Concomitant]
  3. CALCIUM (CALCIUM) [Concomitant]

REACTIONS (4)
  - ALOPECIA [None]
  - CONDITION AGGRAVATED [None]
  - OSTEOPENIA [None]
  - WEIGHT INCREASED [None]
